FAERS Safety Report 7486484-3 (Version None)
Quarter: 2011Q2

REPORT INFORMATION
  Report Type: 
  Country: None (occurrence: None)
  Receive Date: 20110517
  Receipt Date: 20110506
  Transmission Date: 20111010
  Serious: Yes (Other)
  Sender: FDA-Public Use
  Company Number: AU-PERRIGO-11AU003835

PATIENT
  Age: 87 Year
  Sex: Female

DRUGS (2)
  1. IMIQUIMOD [Suspect]
     Indication: ACTINIC KERATOSIS
     Dosage: UNK, 3 TIMES WEEKLY
     Route: 061
  2. BUPRENORPHINE [Concomitant]
     Indication: PAIN IN EXTREMITY
     Route: 062

REACTIONS (2)
  - KERATOACANTHOMA [None]
  - SQUAMOUS CELL CARCINOMA OF SKIN [None]
